FAERS Safety Report 5392994-5 (Version None)
Quarter: 2007Q3

REPORT INFORMATION
  Report Type: 
  Country: None (occurrence: None)
  Receive Date: 20070719
  Receipt Date: 20070706
  Transmission Date: 20080115
  Serious: Yes (Death)
  Sender: FDA-Public Use
  Company Number: L07-USA-02973-05

PATIENT

DRUGS (1)
  1. MEMANTINE HCL [Suspect]

REACTIONS (1)
  - MYOCARDIAL INFARCTION [None]
